FAERS Safety Report 8187595 (Version 2)
Quarter: 2012Q4

REPORT INFORMATION
  Report Type: 
  Country: US (occurrence: US)
  Receive Date: 20111018
  Receipt Date: 20121219
  Transmission Date: 20130627
  Serious: Yes (Disabling)
  Sender: FDA-Public Use
  Company Number: US-ELI_LILLY_AND_COMPANY-US201110002285

PATIENT
  Age: 53 Year
  Sex: Female

DRUGS (9)
  1. HUMULIN NPH [Suspect]
     Indication: TYPE 2 DIABETES MELLITUS
     Dosage: UNK, prn
     Dates: start: 1974
  2. HUMULIN NPH [Suspect]
     Dosage: UNK, prn
     Dates: start: 1974
  3. HUMULIN NPH [Suspect]
     Dosage: UNK, prn
     Dates: start: 1974
  4. HUMULIN NPH [Suspect]
     Dosage: UNK, prn
     Dates: start: 1974
  5. HUMULIN NPH [Suspect]
     Dosage: UNK, prn
     Dates: start: 1974
  6. HUMULIN NPH [Suspect]
     Dosage: UNK, prn
  7. HUMULIN NPH [Suspect]
     Dosage: 58 u, prn
  8. HUMULIN NPH [Suspect]
     Dosage: 58 u, prn
     Dates: start: 1973
  9. LANTUS [Concomitant]

REACTIONS (7)
  - Back disorder [Not Recovered/Not Resolved]
  - Fall [Unknown]
  - Renal disorder [Unknown]
  - Malaise [Not Recovered/Not Resolved]
  - Adverse drug reaction [Unknown]
  - Varicella [Recovered/Resolved]
  - Nervousness [Not Recovered/Not Resolved]
